FAERS Safety Report 15673612 (Version 1)
Quarter: 2018Q4

REPORT INFORMATION
  Report Type: Report from Study
  Country: CA (occurrence: CA)
  Receive Date: 20181129
  Receipt Date: 20181129
  Transmission Date: 20190205
  Serious: Yes (Other)
  Sender: FDA-Public Use
  Company Number: CA-GREER LABORATORIES, INC.-2059426

PATIENT
  Age: 37 Year
  Sex: Male

DRUGS (1)
  1. POLLENS - WEEDS AND GARDEN PLANTS, SHORT RAGWEED, AMBROSIA ARTEMISIIFOLIA [Suspect]
     Active Substance: AMBROSIA ARTEMISIIFOLIA POLLEN
     Indication: DIAGNOSTIC PROCEDURE
     Route: 023
     Dates: start: 20181113, end: 20181113

REACTIONS (3)
  - Angioedema [Recovering/Resolving]
  - Pruritus generalised [Recovering/Resolving]
  - Abdominal discomfort [Recovering/Resolving]

NARRATIVE: CASE EVENT DATE: 20181113
